FAERS Safety Report 5947241-X (Version None)
Quarter: 2008Q4

REPORT INFORMATION
  Report Type: 
  Country: None (occurrence: None)
  Receive Date: 20081110
  Receipt Date: 20081103
  Transmission Date: 20090506
  Serious: No
  Sender: FDA-Public Use
  Company Number: US-B.I. PHARMACEUTICALS,INC./RIDGEFIELD-2008-BP-16656BP

PATIENT
  Age: 70 Year
  Sex: Male

DRUGS (8)
  1. FLOMAX [Suspect]
     Indication: BLADDER DISORDER
     Dosage: .4MG
     Route: 048
     Dates: start: 20060101, end: 20070101
  2. FLOMAX [Suspect]
     Dosage: .8MG
     Route: 048
     Dates: start: 20070101
  3. CIALIS [Concomitant]
     Indication: ERECTILE DYSFUNCTION
  4. ATENOLOL [Concomitant]
     Indication: HYPERTENSION
  5. ASPIRIN [Concomitant]
     Indication: TRANSIENT ISCHAEMIC ATTACK
  6. AMITRIPTYLINE HCL [Concomitant]
     Indication: INSOMNIA
  7. SIMVASTATIN [Concomitant]
     Indication: BLOOD CHOLESTEROL INCREASED
  8. VESICARE [Concomitant]
     Indication: MICTURITION DISORDER

REACTIONS (1)
  - DRUG INEFFECTIVE FOR UNAPPROVED INDICATION [None]
